FAERS Safety Report 9377766 (Version 1)
Quarter: 2013Q3

REPORT INFORMATION
  Report Type: Spontaneous
  Country: US (occurrence: US)
  Receive Date: 20130701
  Receipt Date: 20130701
  Transmission Date: 20140515
  Serious: No
  Sender: FDA-Public Use
  Company Number: US-GLAXOSMITHKLINE-A0383773A

PATIENT
  Sex: Male

DRUGS (2)
  1. IMITREX [Suspect]
     Indication: HEADACHE
     Dosage: 25MG AS REQUIRED
     Route: 048
  2. AVODART [Suspect]
     Indication: PROSTATOMEGALY
     Dosage: 1CAP PER DAY
     Route: 065

REACTIONS (5)
  - Psychomotor hyperactivity [Unknown]
  - Nervousness [Unknown]
  - Insomnia [Unknown]
  - Poor quality sleep [Unknown]
  - Therapeutic response unexpected [Unknown]
